FAERS Safety Report 22381668 (Version 3)
Quarter: 2023Q4

REPORT INFORMATION
  Report Type: Report from Study
  Country: US (occurrence: US)
  Receive Date: 20230530
  Receipt Date: 20231124
  Transmission Date: 20240110
  Serious: Yes (Other)
  Sender: FDA-Public Use
  Company Number: US-002147023-NVSC2023US119127

PATIENT
  Age: 51 Year
  Sex: Female
  Weight: 113.38 kg

DRUGS (1)
  1. KESIMPTA [Suspect]
     Active Substance: OFATUMUMAB
     Indication: Multiple sclerosis
     Dosage: UNK (EVERY 6 WEEKS)
     Route: 058
     Dates: start: 20220126, end: 202311

REACTIONS (5)
  - Optic neuritis [Unknown]
  - COVID-19 [Unknown]
  - Muscular weakness [Unknown]
  - Hypoaesthesia oral [Unknown]
  - Infection [Unknown]

NARRATIVE: CASE EVENT DATE: 20230201
